FAERS Safety Report 24035181 (Version 2)
Quarter: 2024Q3

REPORT INFORMATION
  Report Type: Report from Study
  Country: US (occurrence: US)
  Receive Date: 20240701
  Receipt Date: 20240912
  Transmission Date: 20241016
  Serious: Yes (Hospitalization)
  Sender: MYLAN
  Company Number: US-MYLANLABS-2024M1060737

PATIENT
  Sex: Female
  Weight: 113 kg

DRUGS (1)
  1. CLOZAPINE [Suspect]
     Active Substance: CLOZAPINE
     Indication: Schizoaffective disorder
     Dosage: 100 MILLIGRAM, QD (DAILY)
     Route: 065

REACTIONS (2)
  - Hospitalisation [Unknown]
  - Off label use [Unknown]
